FAERS Safety Report 8792428 (Version 1)
Quarter: 2012Q4

REPORT INFORMATION
  Report Type: 
  Country: US (occurrence: US)
  Receive Date: 20120918
  Receipt Date: 20120918
  Transmission Date: 20130627
  Serious: No
  Sender: FDA-Public Use
  Company Number: US-VERTEX PHARMACEUTICAL INC.-AE-2012-010356

PATIENT
  Age: 60 Year
  Sex: Female
  Weight: 65 kg

DRUGS (6)
  1. VX-950 [Suspect]
     Indication: HEPATITIS C
     Dosage: 750 mg, UNK
     Route: 048
     Dates: start: 2012
  2. PEGASYS [Concomitant]
     Indication: HEPATITIS C
     Dosage: 180 ?g, UNK
     Route: 058
     Dates: start: 2012
  3. RIBAPAK [Concomitant]
     Indication: HEPATITIS C
     Dosage: 400 mg, UNK
     Route: 048
     Dates: start: 2012
  4. BONIVA [Concomitant]
  5. CENTRUM ULTRA WOMEN^S TABLET [Concomitant]
     Dosage: UNK, qd
  6. HYDROCHLOROTHIAZIDE [Concomitant]
     Dosage: UNK, qd

REACTIONS (5)
  - Cough [Unknown]
  - Fatigue [Unknown]
  - Rash generalised [Unknown]
  - Pruritus generalised [Unknown]
  - Dysgeusia [Unknown]
